APPROVED DRUG PRODUCT: ZURZUVAE
Active Ingredient: ZURANOLONE
Strength: 20MG
Dosage Form/Route: CAPSULE;ORAL
Application: N217369 | Product #001
Applicant: BIOGEN INC
Approved: Oct 31, 2023 | RLD: Yes | RS: No | Type: RX

PATENTS:
Patent 11884696 | Expires: Aug 23, 2037
Patent 10342810 | Expires: Apr 17, 2034
Patent 10172871 | Expires: Apr 17, 2034
Patent 9512165 | Expires: Apr 17, 2034
Patent 11236121 | Expires: Aug 23, 2037

EXCLUSIVITY:
Code: NCE | Date: Oct 31, 2028